FAERS Safety Report 8181017-0 (Version None)
Quarter: 2012Q1

REPORT INFORMATION
  Report Type: 
  Country: None (occurrence: None)
  Receive Date: 20120302
  Receipt Date: 20120222
  Transmission Date: 20120608
  Serious: Yes (Other)
  Sender: FDA-Public Use
  Company Number: FR-MPIJNJ-2012-01299

PATIENT

DRUGS (4)
  1. VELCADE [Suspect]
     Dosage: 1.3 MG/M2, UNK
     Route: 058
  2. VELCADE [Suspect]
     Indication: PRODUCT USED FOR UNKNOWN INDICATION
     Dosage: 1.3 MG/M2, UNK
     Route: 042
  3. MELPHALAN HYDROCHLORIDE [Concomitant]
  4. PREDNISONE TAB [Concomitant]

REACTIONS (3)
  - NEUROPATHY PERIPHERAL [None]
  - DERMATITIS EXFOLIATIVE [None]
  - OFF LABEL USE [None]
